FAERS Safety Report 17669205 (Version 8)
Quarter: 2020Q4

REPORT INFORMATION
  Report Type: Report from Study
  Country: US (occurrence: US)
  Receive Date: 20200415
  Receipt Date: 20201023
  Transmission Date: 20210113
  Serious: No
  Sender: FDA-Public Use
  Company Number: NVSC2020US099951

PATIENT
  Sex: Male

DRUGS (2)
  1. COSENTYX [Suspect]
     Active Substance: SECUKINUMAB
     Indication: PSORIATIC ARTHROPATHY
     Dosage: 300 MG, UNKNOWN
     Route: 065
  2. COSENTYX [Suspect]
     Active Substance: SECUKINUMAB
     Dosage: UNK
     Route: 065

REACTIONS (8)
  - Arthritis [Unknown]
  - Arthralgia [Unknown]
  - Grip strength decreased [Unknown]
  - Pain in extremity [Unknown]
  - Needle issue [Recovered/Resolved]
  - Syringe issue [Unknown]
  - Pain [Unknown]
  - Drug ineffective [Unknown]
